FAERS Safety Report 5640458-3 (Version None)
Quarter: 2008Q1

REPORT INFORMATION
  Report Type: 
  Country: None (occurrence: None)
  Receive Date: 20080227
  Receipt Date: 20080123
  Transmission Date: 20080703
  Serious: No
  Sender: FDA-Public Use
  Company Number: US-BAXTER-2008BH000455

PATIENT
  Age: 36 Year
  Weight: 47 kg

DRUGS (8)
  1. HEPARIN SODIUM [Suspect]
     Indication: THROMBOSIS PROPHYLAXIS
     Route: 040
     Dates: start: 20080110, end: 20080110
  2. HEPARIN SODIUM [Suspect]
     Route: 040
     Dates: start: 20080110, end: 20080110
  3. HEPARIN SODIUM [Suspect]
     Route: 040
     Dates: start: 20080110, end: 20080110
  4. HEPARIN SODIUM [Suspect]
     Route: 040
     Dates: start: 20080110, end: 20080110
  5. HEPARIN SODIUM [Suspect]
     Route: 042
     Dates: start: 20080110, end: 20080110
  6. HEPARIN SODIUM [Suspect]
     Route: 042
     Dates: start: 20080110, end: 20080110
  7. HEPARIN SODIUM [Suspect]
     Route: 042
     Dates: start: 20080110, end: 20080110
  8. HEPARIN SODIUM [Suspect]
     Route: 042
     Dates: start: 20080110, end: 20080110

REACTIONS (3)
  - FLUSHING [None]
  - HEADACHE [None]
  - PALPITATIONS [None]
